FAERS Safety Report 15760575 (Version 7)
Quarter: 2019Q4

REPORT INFORMATION
  Report Type: Spontaneous
  Country: US (occurrence: US)
  Receive Date: 20181226
  Receipt Date: 20191031
  Transmission Date: 20200122
  Serious: No
  Sender: FDA-Public Use
  Company Number: US-PFIZER INC-2018526866

PATIENT
  Age: 38 Year
  Sex: Female

DRUGS (44)
  1. DOCETAXEL. [Suspect]
     Active Substance: DOCETAXEL
     Dosage: 80 MG, SINGLE
     Dates: start: 20150518, end: 20150518
  2. DOCETAXEL. [Suspect]
     Active Substance: DOCETAXEL
     Dosage: 20 MG, SINGLE
     Dates: start: 20150901, end: 20150901
  3. DOCETAXEL ACCORD [Suspect]
     Active Substance: DOCETAXEL
     Dosage: 20 MG, SINGLE
     Dates: start: 20150901, end: 20150901
  4. DOCETAXEL SAGENT [Suspect]
     Active Substance: DOCETAXEL
     Dosage: 80 MG, SINGLE
     Dates: start: 20150518, end: 20150518
  5. TAXOTERE [Concomitant]
     Active Substance: DOCETAXEL
     Indication: CHEMOTHERAPY
     Dosage: UNK
  6. DOCETAXEL. [Suspect]
     Active Substance: DOCETAXEL
     Indication: BREAST CANCER METASTATIC
     Dosage: 80 MG, SINGLE
     Dates: start: 20150427, end: 20150427
  7. DOCETAXEL. [Suspect]
     Active Substance: DOCETAXEL
     Dosage: 20 MG, SINGLE
     Dates: start: 20150721, end: 20150721
  8. DOCETAXEL. [Suspect]
     Active Substance: DOCETAXEL
     Dosage: 20 MG, SINGLE
     Dates: start: 20150721, end: 20150721
  9. DOCEFREZ [Suspect]
     Active Substance: DOCETAXEL ANHYDROUS
     Dosage: 20 MG, SINGLE
     Dates: start: 20150721, end: 20150721
  10. DOCEFREZ [Suspect]
     Active Substance: DOCETAXEL ANHYDROUS
     Dosage: 20 MG, SINGLE
     Dates: start: 20150901, end: 20150901
  11. DOCETAXEL SANOFI-AVENTIS [Suspect]
     Active Substance: DOCETAXEL
     Indication: BREAST CANCER METASTATIC
     Dosage: 80 MG, SINGLE
     Dates: start: 20150427, end: 20150427
  12. DOCETAXEL SANOFI-AVENTIS [Suspect]
     Active Substance: DOCETAXEL
     Dosage: 20 MG, SINGLE
     Dates: start: 20150901, end: 20150901
  13. DOCETAXEL SANDOZ [Suspect]
     Active Substance: DOCETAXEL
     Dosage: 20 MG, SINGLE
     Dates: start: 20150811, end: 20150811
  14. DOCETAXEL ACCORD [Suspect]
     Active Substance: DOCETAXEL
     Dosage: 80 MG, SINGLE
     Dates: start: 20150518, end: 20150518
  15. DOCETAXEL SAGENT [Suspect]
     Active Substance: DOCETAXEL
     Indication: BREAST CANCER METASTATIC
     Dosage: 80 MG, SINGLE
     Dates: start: 20150427, end: 20150427
  16. DOCETAXEL SAGENT [Suspect]
     Active Substance: DOCETAXEL
     Dosage: 80 MG, SINGLE
     Dates: start: 20150608, end: 20150608
  17. DOCETAXEL. [Suspect]
     Active Substance: DOCETAXEL
     Dosage: 80 MG, SINGLE
     Dates: start: 20150518, end: 20150518
  18. DOCEFREZ [Suspect]
     Active Substance: DOCETAXEL ANHYDROUS
     Indication: BREAST CANCER METASTATIC
     Dosage: 80 MG, SINGLE
     Dates: start: 20150427, end: 20150427
  19. DOCETAXEL SANOFI-AVENTIS [Suspect]
     Active Substance: DOCETAXEL
     Dosage: 80 MG, SINGLE
     Dates: start: 20150608, end: 20150608
  20. DOCETAXEL SANDOZ [Suspect]
     Active Substance: DOCETAXEL
     Dosage: 20 MG, SINGLE
     Dates: start: 20150721, end: 20150721
  21. DOCETAXEL SANDOZ [Suspect]
     Active Substance: DOCETAXEL
     Dosage: 20 MG, SINGLE
     Dates: start: 20150901, end: 20150901
  22. DOCETAXEL ACCORD [Suspect]
     Active Substance: DOCETAXEL
     Indication: BREAST CANCER METASTATIC
     Dosage: 80 MG, SINGLE
     Dates: start: 20150427, end: 20150427
  23. DOCETAXEL. [Suspect]
     Active Substance: DOCETAXEL
     Dosage: 20 MG, SINGLE
     Dates: start: 20150901, end: 20150901
  24. DOCETAXEL ACCORD [Suspect]
     Active Substance: DOCETAXEL
     Dosage: 20 MG, SINGLE
     Dates: start: 20150721, end: 20150721
  25. DOCETAXEL SAGENT [Suspect]
     Active Substance: DOCETAXEL
     Dosage: 20 MG, SINGLE
     Dates: start: 20150721, end: 20150721
  26. DOCETAXEL SAGENT [Suspect]
     Active Substance: DOCETAXEL
     Dosage: 20 MG, SINGLE
     Dates: start: 20150901, end: 20150901
  27. DOCEFREZ [Suspect]
     Active Substance: DOCETAXEL ANHYDROUS
     Dosage: 80 MG, SINGLE
     Dates: start: 20150608, end: 20150608
  28. DOCETAXEL SANOFI-AVENTIS [Suspect]
     Active Substance: DOCETAXEL
     Dosage: 80 MG, SINGLE
     Dates: start: 20150518, end: 20150518
  29. DOCETAXEL SANDOZ [Suspect]
     Active Substance: DOCETAXEL
     Indication: BREAST CANCER METASTATIC
     Dosage: 80 MG, SINGLE
     Dates: start: 20150427, end: 20150427
  30. DOCETAXEL SAGENT [Suspect]
     Active Substance: DOCETAXEL
     Dosage: 20 MG, SINGLE
     Dates: start: 20150811, end: 20150811
  31. DOCETAXEL. [Suspect]
     Active Substance: DOCETAXEL
     Dosage: 80 MG, SINGLE
     Dates: start: 20150608, end: 20150608
  32. DOCETAXEL. [Suspect]
     Active Substance: DOCETAXEL
     Dosage: 80 MG, SINGLE
     Dates: start: 20150608, end: 20150608
  33. DOCETAXEL SANDOZ [Suspect]
     Active Substance: DOCETAXEL
     Dosage: 80 MG, SINGLE
     Dates: start: 20150518, end: 20150518
  34. DOCETAXEL SANDOZ [Suspect]
     Active Substance: DOCETAXEL
     Dosage: 80 MG, SINGLE
     Dates: start: 20150608, end: 20150608
  35. DOCETAXEL. [Suspect]
     Active Substance: DOCETAXEL
     Dosage: 20 MG, SINGLE
     Dates: start: 20150811, end: 20150811
  36. DOCETAXEL. [Suspect]
     Active Substance: DOCETAXEL
     Indication: BREAST CANCER METASTATIC
     Dosage: 80 MG, SINGLE
     Dates: start: 20150427, end: 20150427
  37. DOCETAXEL. [Suspect]
     Active Substance: DOCETAXEL
     Dosage: 20 MG, SINGLE
     Dates: start: 20150811, end: 20150811
  38. DOCEFREZ [Suspect]
     Active Substance: DOCETAXEL ANHYDROUS
     Dosage: 80 MG, SINGLE
     Dates: start: 20150518, end: 20150518
  39. DOCETAXEL SANOFI-AVENTIS [Suspect]
     Active Substance: DOCETAXEL
     Dosage: 20 MG, SINGLE
     Dates: start: 20150811, end: 20150811
  40. DOCETAXEL ACCORD [Suspect]
     Active Substance: DOCETAXEL
     Dosage: 80 MG, SINGLE
     Dates: start: 20150608, end: 20150608
  41. DOCEFREZ [Suspect]
     Active Substance: DOCETAXEL ANHYDROUS
     Dosage: 20 MG, SINGLE
     Dates: start: 20150811, end: 20150811
  42. DOCETAXEL SANOFI-AVENTIS [Suspect]
     Active Substance: DOCETAXEL
     Dosage: 20 MG, SINGLE
     Dates: start: 20150721, end: 20150721
  43. DOCETAXEL ACCORD [Suspect]
     Active Substance: DOCETAXEL
     Dosage: 20 MG, SINGLE
     Dates: start: 20150811, end: 20150811
  44. PARAPLATIN [Concomitant]
     Active Substance: CARBOPLATIN
     Indication: CHEMOTHERAPY
     Dosage: UNK

REACTIONS (7)
  - Hair texture abnormal [Not Recovered/Not Resolved]
  - Anxiety [Unknown]
  - Alopecia [Not Recovered/Not Resolved]
  - Hair disorder [Not Recovered/Not Resolved]
  - Madarosis [Not Recovered/Not Resolved]
  - Depression [Unknown]
  - Hair colour changes [Not Recovered/Not Resolved]

NARRATIVE: CASE EVENT DATE: 201603
